FAERS Safety Report 4612722-8 (Version None)
Quarter: 2005Q1

REPORT INFORMATION
  Report Type: 
  Country: None (occurrence: None)
  Receive Date: 20050317
  Receipt Date: 20050317
  Transmission Date: 20050727
  Serious: No
  Sender: FDA-Public Use
  Company Number: None

PATIENT
  Age: 74 Year
  Sex: Male
  Weight: 62 kg

DRUGS (17)
  1. ENALAPRIL    10MG [Suspect]
     Indication: HYPERTENSION
     Dosage: 10MG   QD   ORAL
     Route: 048
     Dates: start: 20041120, end: 20041212
  2. ENALAPRIL    10MG [Suspect]
     Indication: RENAL DISORDER
     Dosage: 10MG   QD   ORAL
     Route: 048
     Dates: start: 20041120, end: 20041212
  3. IRBESARTAN [Suspect]
     Indication: HYPERTENSION
     Dosage: 150MG   QD    ORAL
     Route: 048
     Dates: start: 20041120, end: 20041212
  4. IRBESARTAN [Suspect]
     Indication: RENAL DISORDER
     Dosage: 150MG   QD    ORAL
     Route: 048
     Dates: start: 20041120, end: 20041212
  5. NIFEDIPINE [Concomitant]
  6. CALCIUM CARBONATE [Concomitant]
  7. DARBEPOETIN [Concomitant]
  8. LABETALOL HCL [Concomitant]
  9. LASIX [Concomitant]
  10. BICITRA [Concomitant]
  11. RISPERDAL [Concomitant]
  12. SEROQUEL [Concomitant]
  13. CITALOPRAM HYDROBROMIDE [Concomitant]
  14. FERROUS SULFATE TAB [Concomitant]
  15. VITAMIN D [Concomitant]
  16. VITAMIN AND MINERAL PRENATAL SUPPLEMENT W/ FOLIC ACID CAP [Concomitant]
  17. VITAMIN B-12 [Concomitant]

REACTIONS (2)
  - EYELID OEDEMA [None]
  - SWELLING FACE [None]
